FAERS Safety Report 19872642 (Version 2)
Quarter: 2021Q4

REPORT INFORMATION
  Report Type: Spontaneous
  Country: US (occurrence: US)
  Receive Date: 20210923
  Receipt Date: 20211001
  Transmission Date: 20220303
  Serious: No
  Sender: FDA-Public Use
  Company Number: US-APOTEX-2021AP042800

PATIENT
  Sex: Female

DRUGS (1)
  1. CALCITONIN SALMON [Suspect]
     Active Substance: CALCITONIN SALMON
     Indication: Bone disorder
     Dosage: UNK; 1 PUMP A DAY, INTRANASAL SPRAY
     Route: 045

REACTIONS (5)
  - Incorrect dose administered by device [Unknown]
  - Product delivery mechanism issue [Unknown]
  - Product cleaning inadequate [Unknown]
  - Product closure issue [Unknown]
  - No adverse event [Unknown]

NARRATIVE: CASE EVENT DATE: 20210101
